FAERS Safety Report 24778802 (Version 2)
Quarter: 2025Q1

REPORT INFORMATION
  Report Type: Report from Study
  Country: US (occurrence: US)
  Receive Date: 20241226
  Receipt Date: 20250303
  Transmission Date: 20250408
  Serious: Yes (Death, Other)
  Sender: ACADIA PHARMACEUTICALS
  Company Number: US-ACADIA PHARMACEUTICALS INC.-ACA-2024-PIM-008518

PATIENT
  Sex: Female

DRUGS (25)
  1. NUPLAZID [Suspect]
     Active Substance: PIMAVANSERIN TARTRATE
     Indication: Parkinson^s disease
     Dosage: 34 MILLIGRAM, QD (AT BEDTIME)
     Route: 048
     Dates: start: 20210527
  2. NUPLAZID [Suspect]
     Active Substance: PIMAVANSERIN TARTRATE
     Indication: Hallucination
  3. NUPLAZID [Suspect]
     Active Substance: PIMAVANSERIN TARTRATE
     Indication: Delusion
  4. AUVELITY [Concomitant]
     Active Substance: BUPROPION HYDROCHLORIDE\DEXTROMETHORPHAN HYDROBROMIDE
  5. BUSPIRONE [Concomitant]
     Active Substance: BUSPIRONE HYDROCHLORIDE
  6. DAYVIGO [Concomitant]
     Active Substance: LEMBOREXANT
  7. LAMICTAL [Concomitant]
     Active Substance: LAMOTRIGINE
  8. METFORMIN [Concomitant]
     Active Substance: METFORMIN HYDROCHLORIDE
  9. OMEPRAZOLE [Concomitant]
     Active Substance: OMEPRAZOLE
  10. PROPRANOLOL [Concomitant]
     Active Substance: PROPRANOLOL HYDROCHLORIDE
  11. TRAZODONE [Concomitant]
     Active Substance: TRAZODONE HYDROCHLORIDE
  12. VRAYLAR [Concomitant]
     Active Substance: CARIPRAZINE
  13. SUCRALFATE [Concomitant]
     Active Substance: SUCRALFATE
  14. ASPIRIN [Concomitant]
     Active Substance: ASPIRIN
  15. AUSTEDO [Concomitant]
     Active Substance: DEUTETRABENAZINE
  16. CALCIUM\VITAMIN D [Concomitant]
     Active Substance: CALCIUM\VITAMIN D
  17. ZOLPIDEM [Concomitant]
     Active Substance: ZOLPIDEM TARTRATE
  18. LEVOTHYROXINE [Concomitant]
     Active Substance: LEVOTHYROXINE
  19. DONEPEZIL [Concomitant]
     Active Substance: DONEPEZIL
  20. DESVENLAFAXINE [Concomitant]
     Active Substance: DESVENLAFAXINE
  21. DESVENLAFAXINE [Concomitant]
     Active Substance: DESVENLAFAXINE
  22. CARBIDOPA LEVODOPA [Concomitant]
     Active Substance: CARBIDOPA\LEVODOPA
  23. BUPROPION [Concomitant]
     Active Substance: BUPROPION
  24. FLUTICASONE PROPIONATE [Concomitant]
     Active Substance: FLUTICASONE PROPIONATE
  25. POTASSIUM CHLORIDE EXTENDED RELEASE [Concomitant]
     Active Substance: POTASSIUM CHLORIDE

REACTIONS (1)
  - Death [Fatal]
